FAERS Safety Report 4767393-7 (Version None)
Quarter: 2005Q3

REPORT INFORMATION
  Report Type: 
  Country: None (occurrence: None)
  Receive Date: 20050909
  Receipt Date: 20050831
  Transmission Date: 20060218
  Serious: Yes (Other)
  Sender: FDA-Public Use
  Company Number: 2005-07-2292

PATIENT
  Age: 30 Year
  Sex: Female
  Weight: 69.8539 kg

DRUGS (5)
  1. CLARITIN-D [Suspect]
     Indication: HYPERSENSITIVITY
     Dosage: 1 TAB QD ORAL
     Route: 048
     Dates: start: 20040301, end: 20050501
  2. RITALIN [Concomitant]
  3. METHYLPHENIDATE HCL [Concomitant]
  4. MUSCLE RELAXANT (NOS) [Concomitant]
  5. ALCHOL [Concomitant]

REACTIONS (15)
  - ALCOHOL USE [None]
  - AUTOIMMUNE DISORDER [None]
  - BONE PAIN [None]
  - DRUG WITHDRAWAL SYNDROME [None]
  - DYSPNOEA [None]
  - GRIP STRENGTH DECREASED [None]
  - HYPOAESTHESIA [None]
  - INTERVERTEBRAL DISC PROTRUSION [None]
  - MUSCLE SPASMS [None]
  - NECK PAIN [None]
  - NERVOUS SYSTEM DISORDER [None]
  - NEUROPATHY [None]
  - PAIN IN EXTREMITY [None]
  - PARAESTHESIA [None]
  - RADICULITIS BRACHIAL [None]
